FAERS Safety Report 11413649 (Version 2)
Quarter: 2015Q4

REPORT INFORMATION
  Report Type: Spontaneous
  Country: RU (occurrence: RU)
  Receive Date: 20150824
  Receipt Date: 20151028
  Transmission Date: 20160304
  Serious: Yes (Other)
  Sender: FDA-Public Use
  Company Number: RU-BAYER-2015-402333

PATIENT
  Age: 23 Year
  Sex: Female

DRUGS (1)
  1. YAZ PLUS [Suspect]
     Active Substance: DROSPIRENONE\ETHINYL ESTRADIOL
     Dosage: UNK
     Dates: start: 2014, end: 201510

REACTIONS (3)
  - Respiratory tract infection [Recovered/Resolved]
  - Metrorrhagia [Recovered/Resolved]
  - Drug dose omission [None]
